FAERS Safety Report 6304342-4 (Version None)
Quarter: 2009Q3

REPORT INFORMATION
  Report Type: 
  Country: None (occurrence: None)
  Receive Date: 20090811
  Receipt Date: 20090729
  Transmission Date: 20100115
  Serious: Yes (Hospitalization, Other)
  Sender: FDA-Public Use
  Company Number: FR-CELGENEUS-056-20484-09071438

PATIENT
  Sex: Male
  Weight: 75 kg

DRUGS (4)
  1. INNOHEP [Suspect]
     Indication: PHLEBITIS
     Route: 058
     Dates: start: 20090514, end: 20090720
  2. INNOHEP [Suspect]
     Indication: PULMONARY EMBOLISM
  3. UNFRACTIONED HEPARIN [Concomitant]
     Indication: PHLEBITIS
     Route: 065
  4. UNFRACTIONED HEPARIN [Concomitant]
     Indication: PULMONARY EMBOLISM

REACTIONS (3)
  - DRUG INEFFECTIVE [None]
  - PHLEBITIS [None]
  - PULMONARY EMBOLISM [None]
